FAERS Safety Report 21469238 (Version 1)
Quarter: 2022Q4

REPORT INFORMATION
  Report Type: Spontaneous
  Country: BE (occurrence: BE)
  Receive Date: 20221018
  Receipt Date: 20221018
  Transmission Date: 20230112
  Serious: Yes (Hospitalization)
  Sender: FDA-Public Use
  Company Number: None

PATIENT
  Age: 48 Year
  Sex: Female
  Weight: 84 kg

DRUGS (1)
  1. OZEMPIC [Suspect]
     Active Substance: SEMAGLUTIDE
     Indication: Weight control
     Dosage: 1 DF QW
     Route: 058
     Dates: start: 20220811, end: 20220915

REACTIONS (8)
  - Pancreatitis necrotising [Unknown]
  - Mesenteric vein thrombosis [Unknown]
  - C-reactive protein increased [Unknown]
  - Leukocytosis [Unknown]
  - Lipase increased [Unknown]
  - Abdominal pain [Unknown]
  - Vomiting [Unknown]
  - Off label use [Unknown]
